FAERS Safety Report 15229770 (Version 1)
Quarter: 2018Q3

REPORT INFORMATION
  Report Type: Spontaneous
  Country: US (occurrence: US)
  Receive Date: 20180802
  Receipt Date: 20180802
  Transmission Date: 20181010
  Serious: Yes (Other)
  Sender: FDA-Public Use
  Company Number: US-ACCORD-062661

PATIENT
  Age: 48 Year
  Sex: Female
  Weight: 88.9 kg

DRUGS (19)
  1. BENICAR [Concomitant]
     Active Substance: OLMESARTAN MEDOXOMIL
     Dosage: STRENGTH: 20 MG
     Dates: start: 20070801
  2. NEULASTA [Concomitant]
     Active Substance: PEGFILGRASTIM
     Dosage: STRENGTH: 6 MG/ 0.6 ML SUB?Q SYRINGE
     Dates: start: 20130906, end: 20131227
  3. CLARITIN [Concomitant]
     Active Substance: LORATADINE
     Dosage: STRENGTH: 10 MG
     Dates: start: 20130906, end: 201408
  4. OXYCODONE HYDROCHLORIDE/PARACETAMOL [Concomitant]
     Dosage: STRENGTH: 5 MG ? 325 MG
     Dates: start: 2013, end: 2015
  5. COUMADIN [Concomitant]
     Active Substance: WARFARIN SODIUM
     Dosage: STRENGTH: 2 MG
     Dates: start: 20130906, end: 20170201
  6. PROCHLORPERAZINE. [Concomitant]
     Active Substance: PROCHLORPERAZINE
     Dosage: STRENGTH: 10 MG
     Dates: start: 20130906, end: 20150101
  7. OXYCODONE HYDROCHLORIDE/PARACETAMOL [Concomitant]
     Dosage: STRENGTH: 325 MG?10 MG
     Dates: start: 20130101, end: 20150101
  8. ZOFRAN ODT [Concomitant]
     Active Substance: ONDANSETRON HYDROCHLORIDE
     Dosage: STRENGTH: 8 MG
     Dates: start: 20130101, end: 20160101
  9. DEXAMETHASONE. [Concomitant]
     Active Substance: DEXAMETHASONE
     Dosage: STRENGTH: 4 MG
     Dates: start: 20130101, end: 20150101
  10. HYDROCODONE BITARTRATE/PARACETAMOL [Concomitant]
     Dosage: STRENGTH: 7.5 MG? 750 MG
  11. HERCEPTIN [Suspect]
     Active Substance: TRASTUZUMAB
     Indication: BREAST CANCER
     Dates: start: 20130906, end: 20131227
  12. COREG [Concomitant]
     Active Substance: CARVEDILOL
     Dosage: STRENGTH: 12.5 MG
     Dates: start: 20130101, end: 20140101
  13. ALPRAZOLAM. [Concomitant]
     Active Substance: ALPRAZOLAM
     Dosage: STRENGTH: 0.25 MG
     Dates: start: 20130101, end: 20150101
  14. DOCETAXEL ACCORD [Suspect]
     Active Substance: DOCETAXEL
     Indication: BREAST CANCER
     Route: 042
     Dates: start: 20130906, end: 20131227
  15. PARAPLATIN [Suspect]
     Active Substance: CARBOPLATIN
     Indication: BREAST CANCER
     Dates: start: 20130906, end: 20131227
  16. ONDANSETRON [Concomitant]
     Active Substance: ONDANSETRON
     Dosage: STRENGTH: 8 MG
     Dates: start: 20130906, end: 20150101
  17. LIDOCAINE/PRILOCAINE [Concomitant]
     Dosage: STRENGTH: 2.5 %?2.5%
     Route: 061
  18. IRON [Concomitant]
     Active Substance: IRON
     Dosage: STRENGTH: 325 MG (65 MG IRON)
  19. WARFARIN [Concomitant]
     Active Substance: WARFARIN
     Dosage: STRENGTH: 1 MG
     Dates: start: 20130906, end: 201702

REACTIONS (1)
  - Alopecia [Not Recovered/Not Resolved]

NARRATIVE: CASE EVENT DATE: 20130920
